FAERS Safety Report 5007947-6 (Version None)
Quarter: 2006Q2

REPORT INFORMATION
  Report Type: 
  Country: None (occurrence: None)
  Receive Date: 20060517
  Receipt Date: 20060515
  Transmission Date: 20061013
  Serious: Yes (Hospitalization)
  Sender: FDA-Public Use
  Company Number: 220225

PATIENT
  Age: 61 Year
  Sex: Male

DRUGS (3)
  1. AVASTIN [Suspect]
     Indication: COLORECTAL CANCER
     Dosage: 600 MG, Q3W, INTRAVENOUS
     Route: 042
     Dates: start: 20050928
  2. CAPECITABINE(CAPECITABINE) [Suspect]
     Indication: COLORECTAL CANCER
     Dosage: 1000 MG, BID, ORAL
     Route: 048
     Dates: start: 20050928
  3. OXALIPLATIN (OXALIPLATIN) [Suspect]
     Indication: COLORECTAL CANCER
     Dosage: 200 MG, Q3W, INTRAVENOUS
     Route: 042
     Dates: start: 20050928

REACTIONS (3)
  - CARDIOVASCULAR DISORDER [None]
  - OEDEMA PERIPHERAL [None]
  - ULTRASOUND SCAN ABNORMAL [None]
